FAERS Safety Report 15895990 (Version 3)
Quarter: 2019Q1

REPORT INFORMATION
  Report Type: Report from Study
  Country: GE (occurrence: GE)
  Receive Date: 20190131
  Receipt Date: 20190308
  Transmission Date: 20190417
  Serious: Yes (Other)
  Sender: FDA-Public Use
  Company Number: GE-JNJFOC-20190136631

PATIENT
  Age: 55 Year
  Sex: Male
  Weight: 58 kg

DRUGS (4)
  1. PYRIDOXIN [Concomitant]
     Active Substance: PYRIDOXINE
     Indication: PROPHYLAXIS
     Route: 048
     Dates: start: 20180716, end: 20190123
  2. LINEZOLID. [Suspect]
     Active Substance: LINEZOLID
     Indication: TUBERCULOSIS
     Route: 065
     Dates: start: 20180716, end: 20190118
  3. PRETOMANID [Suspect]
     Active Substance: PRETOMANID
     Indication: TUBERCULOSIS
     Route: 065
     Dates: start: 20180716, end: 20190118
  4. TMC207 [Suspect]
     Active Substance: BEDAQUILINE
     Indication: TUBERCULOSIS
     Route: 048
     Dates: start: 20180716, end: 20190118

REACTIONS (1)
  - Hepatitis B [Recovered/Resolved with Sequelae]

NARRATIVE: CASE EVENT DATE: 20190114
